FAERS Safety Report 8723988 (Version 3)
Quarter: 2013Q3

REPORT INFORMATION
  Report Type: Spontaneous
  Country: US (occurrence: US)
  Receive Date: 20120815
  Receipt Date: 20130724
  Transmission Date: 20140515
  Serious: Yes (Hospitalization, Other)
  Sender: FDA-Public Use
  Company Number: US-AMGEN-USASP2012050758

PATIENT
  Age: 63 Year
  Sex: Female
  Weight: 42.63 kg

DRUGS (4)
  1. PROLIA [Suspect]
     Indication: OSTEOPENIA
     Dosage: 60 UNK, UNK
     Dates: start: 2011
  2. DIOVAN [Concomitant]
  3. RESTASIS [Concomitant]
  4. DEXILANT [Concomitant]

REACTIONS (26)
  - Pelvic prolapse [Not Recovered/Not Resolved]
  - Pelvic floor repair [Not Recovered/Not Resolved]
  - Colectomy [Not Recovered/Not Resolved]
  - Gastrointestinal surgery [Not Recovered/Not Resolved]
  - Bladder operation [Not Recovered/Not Resolved]
  - Gastrointestinal malformation [Unknown]
  - Intestinal resection [Unknown]
  - Gastrointestinal disorder [Unknown]
  - Large intestinal ulcer [Not Recovered/Not Resolved]
  - Abdominal pain [Not Recovered/Not Resolved]
  - Pain in jaw [Not Recovered/Not Resolved]
  - Irritable bowel syndrome [Not Recovered/Not Resolved]
  - Weight decreased [Not Recovered/Not Resolved]
  - Aphagia [Not Recovered/Not Resolved]
  - Malabsorption [Not Recovered/Not Resolved]
  - Drug intolerance [Not Recovered/Not Resolved]
  - Starvation [Not Recovered/Not Resolved]
  - Eating disorder [Not Recovered/Not Resolved]
  - Malaise [Not Recovered/Not Resolved]
  - Osteoporosis [Not Recovered/Not Resolved]
  - Malnutrition [Not Recovered/Not Resolved]
  - Diarrhoea [Not Recovered/Not Resolved]
  - Abdominal pain lower [Unknown]
  - Influenza like illness [Unknown]
  - Feeling abnormal [Unknown]
  - Somnolence [Unknown]
